FAERS Safety Report 8615643-9 (Version None)
Quarter: 2012Q3

REPORT INFORMATION
  Report Type: 
  Country: None (occurrence: None)
  Receive Date: 20120823
  Receipt Date: 20120821
  Transmission Date: 20120928
  Serious: Yes (Life-Threatening, Hospitalization)
  Sender: FDA-Public Use
  Company Number: US-JNJFOC-20120808282

PATIENT
  Age: 74 Year
  Sex: Female
  Weight: 56 kg

DRUGS (7)
  1. XARELTO [Suspect]
     Indication: CEREBROVASCULAR ACCIDENT PROPHYLAXIS
     Route: 048
  2. XARELTO [Suspect]
     Indication: ATRIAL FIBRILLATION
     Route: 048
  3. CARDIZEM CD [Concomitant]
     Route: 048
  4. LASIX [Concomitant]
     Route: 048
  5. MULTAQ [Concomitant]
     Route: 048
  6. COMBIVENT [Concomitant]
     Dosage: 2 PUFFS AS NEEDED
     Route: 055
  7. POTASSIUM CHLORIDE [Concomitant]
     Route: 048

REACTIONS (7)
  - ANAEMIA [None]
  - POLYPECTOMY [None]
  - GASTROINTESTINAL HAEMORRHAGE [None]
  - HAEMORRHAGIC ARTERIOVENOUS MALFORMATION [None]
  - HAEMATOCHEZIA [None]
  - DYSPNOEA [None]
  - DIVERTICULUM [None]
